FAERS Safety Report 9003910 (Version 7)
Quarter: 2014Q1

REPORT INFORMATION
  Report Type: Report from Study
  Country: RS (occurrence: RS)
  Receive Date: 20130108
  Receipt Date: 20140317
  Transmission Date: 20141002
  Serious: Yes (Death, Hospitalization, Other)
  Sender: FDA-Public Use
  Company Number: RS-JNJFOC-20121214152

PATIENT
  Age: 71 Year
  Sex: Male
  Weight: 100 kg

DRUGS (18)
  1. ABIRATERONE ACETATE [Suspect]
     Route: 048
  2. ABIRATERONE ACETATE [Suspect]
     Indication: PROSTATE CANCER METASTATIC
     Route: 048
     Dates: start: 20121023, end: 20121226
  3. LONGACEPH [Concomitant]
     Indication: ANTIBIOTIC THERAPY
     Route: 065
  4. METRONIDAZOLE [Concomitant]
     Indication: PYREXIA
     Route: 042
     Dates: start: 20121231, end: 20130106
  5. TRAMADOL [Concomitant]
     Indication: CANCER PAIN
     Route: 048
     Dates: start: 20121218, end: 20121228
  6. LISINOPRIL [Concomitant]
     Indication: HYPERTENSION
     Route: 048
     Dates: start: 20111201
  7. RANITIDIN [Concomitant]
     Indication: GASTROINTESTINAL DISORDER THERAPY
     Route: 048
     Dates: start: 20120406, end: 20121226
  8. ESOMEPRAZOLE [Concomitant]
     Indication: GASTROINTESTINAL DISORDER THERAPY
     Route: 042
     Dates: start: 20121228, end: 20130101
  9. ESOMEPRAZOLE [Concomitant]
     Indication: GASTROINTESTINAL DISORDER THERAPY
     Route: 048
     Dates: start: 20130102, end: 20130108
  10. CEFTRIAXONE [Concomitant]
     Indication: PYREXIA
     Route: 042
     Dates: start: 20121231, end: 20130106
  11. MORPHINE [Concomitant]
     Indication: DYSPNOEA
     Route: 048
     Dates: start: 20130104, end: 20130113
  12. MORPHINE [Concomitant]
     Indication: PAIN
     Route: 048
     Dates: start: 20130104, end: 20130113
  13. AMINOPHYLLINE [Concomitant]
     Indication: DYSPNOEA
     Route: 042
     Dates: start: 20130107, end: 20130111
  14. DIFLUCAN [Concomitant]
     Indication: CANDIDA INFECTION
     Route: 048
     Dates: start: 20130104, end: 20130111
  15. PREDNISONE [Concomitant]
     Indication: PROSTATE CANCER METASTATIC
     Route: 065
     Dates: start: 20120406, end: 20121226
  16. ORVAGIL [Concomitant]
     Indication: ANTIBIOTIC THERAPY
     Route: 065
  17. OXYGEN [Concomitant]
     Indication: PALLIATIVE CARE
     Route: 065
  18. BLOOD TRANSFUSION [Concomitant]
     Indication: TRANSFUSION
     Route: 065

REACTIONS (9)
  - Prostate cancer [Fatal]
  - General physical health deterioration [Fatal]
  - Melaena [Fatal]
  - Anaemia [Not Recovered/Not Resolved]
  - Fatigue [Not Recovered/Not Resolved]
  - Azotaemia [Not Recovered/Not Resolved]
  - Transaminases increased [Not Recovered/Not Resolved]
  - Hypertension [Recovered/Resolved]
  - Oedema peripheral [Recovered/Resolved]
